FAERS Safety Report 10429673 (Version 1)
Quarter: 2014Q3

REPORT INFORMATION
  Report Type: Spontaneous
  Country: US (occurrence: None)
  Receive Date: 20140804
  Receipt Date: 20140804
  Transmission Date: 20150326
  Serious: Yes (Other)
  Sender: FDA-Public Use
  Company Number: CO-OR-US-2014-004

PATIENT
  Age: 5 Year
  Sex: Male
  Weight: 19.05 kg

DRUGS (4)
  1. AMOXICILLIN. [Suspect]
     Active Substance: AMOXICILLIN
     Indication: EAR INFECTION
     Route: 048
     Dates: start: 20140112
  2. ALBUTEROL. [Suspect]
     Active Substance: ALBUTEROL
     Indication: WHEEZING
     Route: 055
     Dates: start: 20140112
  3. NOVOLOG [Concomitant]
     Active Substance: INSULIN ASPART
  4. ORAPRED ODT [Suspect]
     Active Substance: PREDNISOLONE SODIUM PHOSPHATE
     Indication: RESPIRATORY TRACT INFECTION
     Dates: start: 20140112

REACTIONS (2)
  - Urine ketone body present [None]
  - Blood glucose increased [None]

NARRATIVE: CASE EVENT DATE: 20140112
